FAERS Safety Report 20059498 (Version 1)
Quarter: 2021Q4

REPORT INFORMATION
  Report Type: Spontaneous
  Country: US (occurrence: None)
  Receive Date: 20211111
  Receipt Date: 20211111
  Transmission Date: 20220303
  Serious: Yes (Other)
  Sender: FDA-Public Use
  Company Number: None

PATIENT
  Age: 55 Year
  Sex: Male

DRUGS (1)
  1. HUMIRA [Suspect]
     Active Substance: ADALIMUMAB
     Indication: Rheumatoid arthritis
     Dosage: OTHER FREQUENCY : Q 2 WEEKS;?
     Route: 058
     Dates: start: 20210701

REACTIONS (2)
  - Prostate cancer [None]
  - Therapy interrupted [None]

NARRATIVE: CASE EVENT DATE: 20211105
